FAERS Safety Report 7325696-6 (Version None)
Quarter: 2011Q1

REPORT INFORMATION
  Report Type: 
  Country: None (occurrence: None)
  Receive Date: 20110302
  Receipt Date: 20110222
  Transmission Date: 20110831
  Serious: Yes (Life-Threatening, Hospitalization, Other)
  Sender: FDA-Public Use
  Company Number: US-ELI_LILLY_AND_COMPANY-US201102003540

PATIENT
  Sex: Female

DRUGS (16)
  1. PERSANTINE [Concomitant]
  2. VITAMIN D [Concomitant]
     Dosage: 50000 D/F, WEEKLY (1/W)
  3. CALTRATE /00108001/ [Concomitant]
     Dosage: 600 MG, UNK
  4. MULTI-VITAMIN [Concomitant]
  5. GLUCOSAMINE [Concomitant]
  6. COUMADIN [Concomitant]
  7. PLAVIX [Concomitant]
     Dates: end: 20100801
  8. FISH OIL [Concomitant]
     Dosage: UNK, UNKNOWN
     Route: 065
  9. CO-Q10 [Concomitant]
     Dosage: 300 MG, DAILY (1/D)
  10. FOLIC ACID [Concomitant]
  11. ASPIRIN [Concomitant]
     Dosage: 81 MG, UNK
  12. BISOPROLOL FUMARATE [Concomitant]
     Indication: BLOOD PRESSURE INCREASED
     Dosage: 5 MG, UNK
  13. FORTEO [Suspect]
     Indication: OSTEOPOROSIS
     Dosage: 20 UG, DAILY (1/D)
     Dates: start: 20091201, end: 20110118
  14. PERCOCET [Concomitant]
  15. LOVAZA [Concomitant]
  16. ACIDOPHILUS [Concomitant]

REACTIONS (11)
  - ARTERIAL DISORDER [None]
  - ARTERIAL THERAPEUTIC PROCEDURE [None]
  - CEREBROVASCULAR ACCIDENT [None]
  - ARTERIAL BYPASS OPERATION [None]
  - STENT PLACEMENT [None]
  - MENTAL DISORDER [None]
  - HEADACHE [None]
  - MUSCULOSKELETAL DISORDER [None]
  - OESOPHAGEAL INJURY [None]
  - CONVULSION [None]
  - PARANOIA [None]
